FAERS Safety Report 19239328 (Version 2)
Quarter: 2021Q2

REPORT INFORMATION
  Report Type: Spontaneous
  Country: US (occurrence: US)
  Receive Date: 20210510
  Receipt Date: 20210611
  Transmission Date: 20210717
  Serious: Yes (Hospitalization)
  Sender: FDA-Public Use
  Company Number: US-PROCTER_AND_GAMBLE-PH21003797

PATIENT
  Age: 19 Year
  Sex: Male

DRUGS (2)
  1. SLEEP /00000402/ [Suspect]
     Active Substance: DIPHENHYDRAMINE HYDROCHLORIDE
     Dosage: UNK
  2. VICKS NYQUIL D COLD AND FLU NIGHTTIME RELIEF [Suspect]
     Active Substance: ACETAMINOPHEN\DEXTROMETHORPHAN HYDROBROMIDE\DOXYLAMINE SUCCINATE\PSEUDOEPHEDRINE HYDROCHLORIDE
     Dosage: TAKEN A FULL 16 OZ BOTTLE OF NYQUIL, OVER THE COURSE OF 6 HOURS
     Route: 048

REACTIONS (9)
  - Blood glucose decreased [Unknown]
  - Sinus tachycardia [Unknown]
  - Dysarthria [Unknown]
  - Mydriasis [Unknown]
  - Mental status changes [Unknown]
  - Depressed level of consciousness [Unknown]
  - Electrocardiogram QT prolonged [Unknown]
  - Flushing [Unknown]
  - Hypertension [Unknown]
